FAERS Safety Report 10264218 (Version 1)
Quarter: 2014Q2

REPORT INFORMATION
  Report Type: Spontaneous
  Country: US (occurrence: None)
  Receive Date: 20140624
  Receipt Date: 20140624
  Transmission Date: 20141212
  Serious: No
  Sender: FDA-Public Use
  Company Number: None

PATIENT
  Age: 69 Year
  Sex: Female
  Weight: 74.84 kg

DRUGS (1)
  1. LYRICA 75 MG PFIZER [Suspect]
     Indication: FIBROMYALGIA
     Dosage: 1, TWICE DAILY, TAKEN BY MOUTH
     Route: 048
     Dates: start: 20140308, end: 20140618

REACTIONS (1)
  - Convulsion [None]
